FAERS Safety Report 6300440-X (Version None)
Quarter: 2009Q3

REPORT INFORMATION
  Report Type: 
  Country: None (occurrence: None)
  Receive Date: 20090806
  Receipt Date: 20081023
  Transmission Date: 20100115
  Serious: No
  Sender: FDA-Public Use
  Company Number: US-ABBOTT-08P-163-0479335-00

PATIENT
  Sex: Female

DRUGS (5)
  1. DEPAKOTE ER [Suspect]
     Indication: MIGRAINE WITH AURA
     Route: 048
     Dates: start: 20080922
  2. GLEEVIC [Concomitant]
     Indication: LEUKAEMIA
     Route: 048
  3. PANTOPRAZOLE SODIUM [Concomitant]
     Indication: GASTRIC DISORDER
     Route: 048
  4. METOPROLOL SUCCINATE [Concomitant]
     Indication: CARDIAC DISORDER
     Route: 048
  5. AREMIDEX [Concomitant]
     Indication: OVARIAN HYPERFUNCTION
     Route: 048

REACTIONS (1)
  - MUSCULOSKELETAL CHEST PAIN [None]
